FAERS Safety Report 13099266 (Version 2)
Quarter: 2017Q1

REPORT INFORMATION
  Report Type: Spontaneous
  Country: US (occurrence: US)
  Receive Date: 20170109
  Receipt Date: 20170118
  Transmission Date: 20170428
  Serious: Yes (Hospitalization)
  Sender: FDA-Public Use
  Company Number: US-ACTELION-A-US2017-148018

PATIENT
  Age: 4 Year
  Sex: Female

DRUGS (2)
  1. TRACLEER [Suspect]
     Active Substance: BOSENTAN
     Dosage: 62.5 MG, BID
     Route: 048
  2. TRACLEER [Suspect]
     Active Substance: BOSENTAN
     Indication: PULMONARY HYPERTENSION
     Dosage: 31.25 MG, BID
     Route: 048
     Dates: start: 20140131

REACTIONS (3)
  - Pleural effusion [Unknown]
  - Pneumonia [Unknown]
  - Oxygen consumption increased [Recovering/Resolving]
